FAERS Safety Report 4766356-5 (Version None)
Quarter: 2005Q3

REPORT INFORMATION
  Report Type: 
  Country: None (occurrence: None)
  Receive Date: 20050909
  Receipt Date: 20050826
  Transmission Date: 20060218
  Serious: Yes (Death)
  Sender: FDA-Public Use
  Company Number: 2005P1000276

PATIENT
  Age: 67 Year
  Sex: Male

DRUGS (7)
  1. RETEVASE [Suspect]
     Indication: ACUTE MYOCARDIAL INFARCTION
     Dosage: IV
     Route: 042
     Dates: start: 20050717, end: 20050717
  2. ABCIXIMAB (ABCIXIMAB) [Suspect]
     Indication: ACUTE MYOCARDIAL INFARCTION
     Dosage: IV
     Route: 042
     Dates: start: 20050717, end: 20050717
  3. GLYCERYL TRINITRATE (GLYCERYL TRINITRATE) [Suspect]
     Indication: ACUTE MYOCARDIAL INFARCTION
     Dosage: PO
     Route: 048
     Dates: start: 20050717, end: 20050717
  4. CLOPIDOGREL [Concomitant]
  5. ATORVASTATIN [Concomitant]
  6. ENALAPRIL [Concomitant]
  7. OMEPRAZOLE [Concomitant]

REACTIONS (5)
  - CARDIO-RESPIRATORY ARREST [None]
  - PROCEDURAL COMPLICATION [None]
  - RESPIRATORY ARREST [None]
  - RESPIRATORY TRACT INFECTION [None]
  - VENTRICULAR FIBRILLATION [None]
